FAERS Safety Report 11125170 (Version 1)
Quarter: 2015Q2

REPORT INFORMATION
  Report Type: Spontaneous
  Country: BR (occurrence: BR)
  Receive Date: 20150520
  Receipt Date: 20150520
  Transmission Date: 20150821
  Serious: Yes (Other)
  Sender: FDA-Public Use
  Company Number: BR-PFIZER INC-2015167292

PATIENT
  Age: 67 Year
  Sex: Female

DRUGS (1)
  1. PIPERACILLIN/TAZOBACTAM [Suspect]
     Active Substance: PIPERACILLIN SODIUM\TAZOBACTAM SODIUM
     Indication: PNEUMONIA
     Dosage: 2G/250MG, 4X/DAY
     Route: 042

REACTIONS (7)
  - Cerebellar syndrome [Recovered/Resolved]
  - Myoclonus [Recovered/Resolved]
  - Neurotoxicity [Recovered/Resolved]
  - Cranial nerve paralysis [Recovered/Resolved]
  - Muscular weakness [Recovered/Resolved]
  - Dysarthria [Recovered/Resolved]
  - Asterixis [Recovered/Resolved]
